FAERS Safety Report 16595752 (Version 1)
Quarter: 2019Q3

REPORT INFORMATION
  Report Type: Spontaneous
  Country: US (occurrence: US)
  Receive Date: 20190605
  Receipt Date: 20190605
  Transmission Date: 20191004
  Serious: No
  Sender: FDA-Public Use
  Company Number: None

PATIENT

DRUGS (2)
  1. MIDAZOLAM HCL MIDAZOLAM [Suspect]
     Active Substance: MIDAZOLAM HYDROCHLORIDE
     Dosage: ?          OTHER ROUTE:I.M. OR I.V.?
  2. PROCHLORPERAZINE PROCHLORPERAZINE [Suspect]
     Active Substance: PROCHLORPERAZINE
     Dosage: ?          OTHER ROUTE:DEEP IM OR IV USE?

REACTIONS (1)
  - Product packaging confusion [None]
